FAERS Safety Report 20357013 (Version 1)
Quarter: 2022Q1

REPORT INFORMATION
  Report Type: Spontaneous
  Country: US (occurrence: US)
  Receive Date: 20220120
  Receipt Date: 20220120
  Transmission Date: 20220423
  Serious: No
  Sender: FDA-Public Use
  Company Number: US-SANOFI-00931514

PATIENT
  Sex: Male

DRUGS (2)
  1. LANTUS SOLOSTAR [Suspect]
     Active Substance: INSULIN GLARGINE
  2. TRULICITY [Concomitant]
     Active Substance: DULAGLUTIDE

REACTIONS (1)
  - Inappropriate schedule of product administration [Unknown]
